FAERS Safety Report 5401618-X (Version None)
Quarter: 2007Q3

REPORT INFORMATION
  Report Type: 
  Country: None (occurrence: None)
  Receive Date: 20070731
  Receipt Date: 20070212
  Transmission Date: 20080115
  Serious: Yes (Other)
  Sender: FDA-Public Use
  Company Number: CA-PFIZER INC-2007012328

PATIENT
  Age: 61 Year
  Sex: Male

DRUGS (7)
  1. PHENYTOIN [Suspect]
     Indication: EPILEPSY
     Dosage: DAILY DOSE:500MG-FREQ:DAILY
  2. ATORVASTATIN CALCIUM [Interacting]
     Indication: HYPERCHOLESTEROLAEMIA
     Dosage: DAILY DOSE:40MG-FREQ:DAILY
  3. NIACIN [Interacting]
     Indication: HYPERCHOLESTEROLAEMIA
     Dosage: DAILY DOSE:2GRAM-FREQ:DAILY
  4. EZETIMIBE [Interacting]
     Indication: HYPERCHOLESTEROLAEMIA
     Dosage: DAILY DOSE:10MG-FREQ:DAILY
  5. ASPIRIN [Concomitant]
     Dosage: DAILY DOSE:81MG-FREQ:DAILY
  6. FOSINOPRIL SODIUM [Concomitant]
     Dosage: DAILY DOSE:20MG-FREQ:DAILY
  7. PHENOBARBITAL TAB [Concomitant]
     Dosage: DAILY DOSE:200MG-FREQ:UNKNOWN

REACTIONS (3)
  - ACUTE CORONARY SYNDROME [None]
  - DRUG INTERACTION [None]
  - LIPIDS ABNORMAL [None]
